FAERS Safety Report 14992399 (Version 1)
Quarter: 2018Q2

REPORT INFORMATION
  Report Type: Spontaneous
  Country: DE (occurrence: DE)
  Receive Date: 20180609
  Receipt Date: 20180609
  Transmission Date: 20180711
  Serious: Yes (Hospitalization)
  Sender: FDA-Public Use
  Company Number: DE-TEVA-2018-DE-903387

PATIENT
  Age: 71 Year
  Sex: Male

DRUGS (4)
  1. RAMIPRIL. [Concomitant]
     Active Substance: RAMIPRIL
     Dosage: 5 MG, 1-0-0-0
  2. ACETYLSALICYLSAEURE [Interacting]
     Active Substance: ASPIRIN
     Dosage: 100 MG, 1-0-0-0
  3. CITALOPRAM [Suspect]
     Active Substance: CITALOPRAM HYDROBROMIDE
     Dosage: 20 MG, 1-0-0-0
  4. OMEPRAZOL [Concomitant]
     Active Substance: OMEPRAZOLE
     Dosage: 40 MG, 1-0-0-0

REACTIONS (5)
  - Labelled drug-drug interaction medication error [Unknown]
  - Dysarthria [Unknown]
  - Fall [Unknown]
  - Hemiparesis [Unknown]
  - Product used for unknown indication [Unknown]
